FAERS Safety Report 6584660-5 (Version None)
Quarter: 2010Q1

REPORT INFORMATION
  Report Type: 
  Country: None (occurrence: None)
  Receive Date: 20100204
  Receipt Date: 20100123
  Transmission Date: 20100710
  Serious: Yes (Hospitalization)
  Sender: FDA-Public Use
  Company Number: 2010-0283

PATIENT
  Age: 10 Year
  Sex: Male

DRUGS (1)
  1. INCRELEX [Suspect]
     Indication: DRUG USE FOR UNKNOWN INDICATION
     Dosage: (0.12 MG/KG)

REACTIONS (1)
  - HYDROCELE [None]
